FAERS Safety Report 5351093-9 (Version None)
Quarter: 2007Q2

REPORT INFORMATION
  Report Type: 
  Country: None (occurrence: None)
  Receive Date: 20070608
  Receipt Date: 20070522
  Transmission Date: 20071010
  Serious: Yes (Hospitalization, Disabling, Other)
  Sender: FDA-Public Use
  Company Number: US-PFIZER INC-2007021131

PATIENT
  Sex: Male
  Weight: 77.1 kg

DRUGS (3)
  1. CELEBREX [Suspect]
     Indication: INTERVERTEBRAL DISC PROTRUSION
     Route: 048
  2. CELEBREX [Suspect]
     Indication: BACK PAIN
  3. BEXTRA [Suspect]
     Indication: BACK PAIN
     Dosage: DAILY DOSE:20MG
     Route: 048

REACTIONS (4)
  - CARDIOVASCULAR DISORDER [None]
  - CEREBROVASCULAR ACCIDENT [None]
  - DEPRESSION [None]
  - TRANSIENT ISCHAEMIC ATTACK [None]
